FAERS Safety Report 6633122-5 (Version None)
Quarter: 2010Q1

REPORT INFORMATION
  Report Type: 
  Country: None (occurrence: None)
  Receive Date: 20100312
  Receipt Date: 20100302
  Transmission Date: 20100710
  Serious: Yes (Other)
  Sender: FDA-Public Use
  Company Number: PHEH2006US01365

PATIENT
  Sex: Female

DRUGS (7)
  1. ZOMETA [Suspect]
     Indication: OSTEOPENIA
     Dosage: ONCE
     Dates: start: 20060120
  2. TRILEPTAL [Concomitant]
     Indication: SPINAL COLUMN STENOSIS
     Dosage: 150MG QD
     Route: 048
     Dates: start: 20030901
  3. DIOVAN [Concomitant]
     Dosage: 320 UNK, QD
     Route: 048
  4. NEXIUM [Concomitant]
     Dosage: 40 UNK, QD
     Route: 048
  5. ATENOLOL [Concomitant]
     Dosage: 1.5, QD
     Route: 048
  6. CORTIZONE [Concomitant]
     Indication: PAIN
  7. DIOVAN HCT [Concomitant]

REACTIONS (19)
  - ARTHRALGIA [None]
  - ARTHROPATHY [None]
  - ASTHENIA [None]
  - BONE PAIN [None]
  - CHILLS [None]
  - CONSTIPATION [None]
  - DECREASED APPETITE [None]
  - DIZZINESS [None]
  - FEELING ABNORMAL [None]
  - FEELING COLD [None]
  - GAIT DISTURBANCE [None]
  - INFLAMMATION [None]
  - MUSCLE DISORDER [None]
  - MYALGIA [None]
  - NAUSEA [None]
  - PAIN [None]
  - POLYARTHRITIS [None]
  - RHEUMATOID ARTHRITIS [None]
  - TREMOR [None]
